FAERS Safety Report 24718031 (Version 1)
Quarter: 2024Q4

REPORT INFORMATION
  Report Type: Spontaneous
  Country: US (occurrence: US)
  Receive Date: 20241210
  Receipt Date: 20241210
  Transmission Date: 20250115
  Serious: Yes (Hospitalization, Other)
  Sender: SANOFI AVENTIS
  Company Number: US-SA-2024SA362994

PATIENT
  Age: 81 Year
  Sex: Female
  Weight: 39.09 kg

DRUGS (4)
  1. DUPIXENT [Suspect]
     Active Substance: DUPILUMAB
     Indication: Neurodermatitis
     Dosage: 300 MG, QOW
     Route: 058
  2. DOCONEXENT\ICOSAPENT [Concomitant]
     Active Substance: DOCONEXENT\ICOSAPENT
  3. SUPER MULTIPLE [Concomitant]
  4. ASPIRIN [Concomitant]
     Active Substance: ASPIRIN

REACTIONS (1)
  - Hip fracture [Unknown]

NARRATIVE: CASE EVENT DATE: 20241128
